FAERS Safety Report 11399547 (Version 1)
Quarter: 2015Q3

REPORT INFORMATION
  Report Type: Spontaneous
  Country: US (occurrence: None)
  Receive Date: 20150819
  Receipt Date: 20150819
  Transmission Date: 20151125
  Serious: Yes (Disabling)
  Sender: FDA-Public Use
  Company Number: None

PATIENT
  Age: 29 Year
  Sex: Male
  Weight: 72.58 kg

DRUGS (1)
  1. FINASTERIDE 1 MG GENERIC/UNKNOWN [Suspect]
     Active Substance: FINASTERIDE
     Indication: ALOPECIA
     Dosage: 30 PILLS
     Route: 048
     Dates: start: 20150521, end: 20150625

REACTIONS (5)
  - Libido decreased [None]
  - No therapeutic response [None]
  - Disturbance in sexual arousal [None]
  - Erectile dysfunction [None]
  - Sexual dysfunction [None]

NARRATIVE: CASE EVENT DATE: 20150818
